FAERS Safety Report 6163021-7 (Version None)
Quarter: 2009Q2

REPORT INFORMATION
  Report Type: 
  Country: None (occurrence: None)
  Receive Date: 20090420
  Receipt Date: 20090401
  Transmission Date: 20091009
  Serious: Yes (Hospitalization)
  Sender: FDA-Public Use
  Company Number: ADE# 09-002DPR

PATIENT
  Age: 74 Year
  Sex: Male

DRUGS (1)
  1. DIGOXIN [Suspect]
     Indication: CARDIAC OPERATION
     Dosage: ONE TABLET DAILY

REACTIONS (5)
  - DIZZINESS [None]
  - FATIGUE [None]
  - HYPOTENSION [None]
  - RASH [None]
  - SYNCOPE [None]
